FAERS Safety Report 5692097-6 (Version None)
Quarter: 2008Q1

REPORT INFORMATION
  Report Type: 
  Country: None (occurrence: None)
  Receive Date: 20080331
  Receipt Date: 20080314
  Transmission Date: 20080703
  Serious: Yes (Hospitalization)
  Sender: FDA-Public Use
  Company Number: 8030746

PATIENT
  Age: 59 Year
  Sex: Female

DRUGS (1)
  1. KEPPRA [Suspect]
     Indication: EPILEPSY
     Dates: start: 20080101

REACTIONS (2)
  - COLITIS ULCERATIVE [None]
  - DRUG TOXICITY [None]
